FAERS Safety Report 4946906-6 (Version None)
Quarter: 2006Q1

REPORT INFORMATION
  Report Type: 
  Country: None (occurrence: None)
  Receive Date: 20060201
  Receipt Date: 20051208
  Transmission Date: 20060701
  Serious: No
  Sender: FDA-Public Use
  Company Number: 2005PV005641

PATIENT
  Age: 47 Year
  Sex: Female

DRUGS (1)
  1. BYETTA [Suspect]
     Dosage: 5 MCG; SC
     Route: 058
     Dates: start: 20051117

REACTIONS (5)
  - ANAL HAEMORRHAGE [None]
  - CONSTIPATION [None]
  - FLATULENCE [None]
  - HERPES SIMPLEX [None]
  - WEIGHT INCREASED [None]
